FAERS Safety Report 8281002-4 (Version None)
Quarter: 2012Q2

REPORT INFORMATION
  Report Type: 
  Country: None (occurrence: None)
  Receive Date: 20120412
  Receipt Date: 20120410
  Transmission Date: 20120825
  Serious: Yes (Hospitalization, Other)
  Sender: FDA-Public Use
  Company Number: BR-ABBOTT-12P-020-0919900-00

PATIENT
  Sex: Female
  Weight: 39 kg

DRUGS (4)
  1. HUMIRA [Suspect]
     Route: 058
     Dates: start: 20110901
  2. HUMIRA [Suspect]
     Route: 058
  3. HUMIRA [Suspect]
     Route: 058
     Dates: end: 20110501
  4. HUMIRA [Suspect]
     Indication: CROHN'S DISEASE
     Dosage: INDUCTION DOSE
     Route: 058
     Dates: start: 20110101

REACTIONS (7)
  - MALNUTRITION [None]
  - FLUID RETENTION [None]
  - LYMPHOCYTE COUNT DECREASED [None]
  - SWELLING [None]
  - URINARY TRACT INFECTION [None]
  - PAIN [None]
  - OEDEMA [None]
